FAERS Safety Report 17693465 (Version 1)
Quarter: 2020Q2

REPORT INFORMATION
  Report Type: Spontaneous
  Country: US (occurrence: US)
  Receive Date: 20200422
  Receipt Date: 20200422
  Transmission Date: 20200714
  Serious: Yes (Other)
  Sender: FDA-Public Use
  Company Number: None

PATIENT
  Sex: Male

DRUGS (22)
  1. TALTZ [Suspect]
     Active Substance: IXEKIZUMAB
     Indication: HYPERHIDROSIS
     Dosage: ?          OTHER FREQUENCY:Q4WKS;?
     Route: 058
     Dates: start: 20180329
  2. DIAZEPAM. [Concomitant]
     Active Substance: DIAZEPAM
  3. PANTOPRAZOLE [Concomitant]
     Active Substance: PANTOPRAZOLE
  4. METOPROLOL TARTRATE. [Concomitant]
     Active Substance: METOPROLOL TARTRATE
  5. METFORMIN [Concomitant]
     Active Substance: METFORMIN HYDROCHLORIDE
  6. ALPHAGAN P [Concomitant]
     Active Substance: BRIMONIDINE TARTRATE
  7. FREESTYLE [Concomitant]
  8. AMLODIPINE [Concomitant]
     Active Substance: AMLODIPINE BESYLATE
  9. TRUPLUS [Concomitant]
  10. FLECTOR [Concomitant]
     Active Substance: DICLOFENAC EPOLAMINE
  11. GABAPENTIN. [Concomitant]
     Active Substance: GABAPENTIN
  12. LOSARTAN. [Concomitant]
     Active Substance: LOSARTAN
  13. OMEGA-3 ACIDS [Concomitant]
     Active Substance: OMEGA-3 FATTY ACIDS
  14. TICLOPIDINE [Concomitant]
     Active Substance: TICLOPIDINE
  15. VITAMIN D [Concomitant]
     Active Substance: VITAMIN D NOS
  16. LEVEMIR [Concomitant]
     Active Substance: INSULIN DETEMIR
  17. PRAVASTATIN. [Concomitant]
     Active Substance: PRAVASTATIN
  18. TRIAMCINOLON [Concomitant]
  19. DULOXETINE. [Concomitant]
     Active Substance: DULOXETINE
  20. FLUVIRIN NOS [Concomitant]
     Active Substance: INFLUENZA VIRUS VACCINE
  21. ISOSORB [Concomitant]
  22. ONETOUCH [Concomitant]

REACTIONS (1)
  - Tuberculin test positive [None]
